FAERS Safety Report 13412114 (Version 2)
Quarter: 2017Q4

REPORT INFORMATION
  Report Type: Spontaneous
  Country: US (occurrence: US)
  Receive Date: 20170406
  Receipt Date: 20171106
  Transmission Date: 20180320
  Serious: Yes (Other)
  Sender: FDA-Public Use
  Company Number: US-JNJFOC-20170317018

PATIENT
  Sex: Male

DRUGS (8)
  1. RISPERDAL [Suspect]
     Active Substance: RISPERIDONE
     Indication: SCHIZOPHRENIA
     Dosage: VARIABLE DOSES OF 1, 2 AND 3 MG
     Route: 048
     Dates: start: 20070801, end: 20080705
  2. RISPERDAL [Suspect]
     Active Substance: RISPERIDONE
     Indication: SCHIZOPHRENIA
     Dosage: VARIABLE DOSES OF 1, 2 AND 3 MG
     Route: 048
     Dates: start: 20021031, end: 20021102
  3. RISPERDAL [Suspect]
     Active Substance: RISPERIDONE
     Indication: SCHIZOPHRENIA
     Dosage: VARIABLE DOSES OF 1, 2 AND 3 MG
     Route: 048
     Dates: start: 20050810, end: 20050815
  4. RISPERDAL [Suspect]
     Active Substance: RISPERIDONE
     Indication: PSYCHOTIC DISORDER
     Dosage: VARIABLE DOSES OF 1, 2 AND 3 MG
     Route: 048
     Dates: start: 20070801, end: 20080705
  5. RISPERDAL [Suspect]
     Active Substance: RISPERIDONE
     Indication: PSYCHOTIC DISORDER
     Dosage: VARIABLE DOSES OF 1, 2 AND 3 MG
     Route: 048
     Dates: start: 20070324, end: 20070330
  6. RISPERDAL [Suspect]
     Active Substance: RISPERIDONE
     Indication: PSYCHOTIC DISORDER
     Dosage: VARIABLE DOSES OF 1, 2 AND 3 MG
     Route: 048
     Dates: start: 20050810, end: 20050815
  7. RISPERDAL [Suspect]
     Active Substance: RISPERIDONE
     Indication: PSYCHOTIC DISORDER
     Dosage: VARIABLE DOSES OF 1, 2 AND 3 MG
     Route: 048
     Dates: start: 20021031, end: 20021102
  8. RISPERDAL [Suspect]
     Active Substance: RISPERIDONE
     Indication: SCHIZOPHRENIA
     Dosage: VARIABLE DOSES OF 1, 2 AND 3 MG
     Route: 048
     Dates: start: 20070324, end: 20070330

REACTIONS (3)
  - Emotional disorder [Unknown]
  - Obesity [Unknown]
  - Gynaecomastia [Unknown]
